FAERS Safety Report 20318575 (Version 1)
Quarter: 2022Q1

REPORT INFORMATION
  Report Type: Spontaneous
  Country: AM (occurrence: AM)
  Receive Date: 20220110
  Receipt Date: 20220110
  Transmission Date: 20220423
  Serious: Yes (Other)
  Sender: FDA-Public Use
  Company Number: AM-Fresenius Kabi-FK202200278

PATIENT
  Age: 43 Year
  Sex: Male

DRUGS (5)
  1. DEXAMETHASONE [Suspect]
     Active Substance: DEXAMETHASONE
     Indication: COVID-19
     Route: 065
  2. METHYLPREDNISOLONE [Suspect]
     Active Substance: METHYLPREDNISOLONE
     Indication: COVID-19
     Route: 065
  3. METHYLPREDNISOLONE [Suspect]
     Active Substance: METHYLPREDNISOLONE
     Route: 065
  4. METHYLPREDNISOLONE [Suspect]
     Active Substance: METHYLPREDNISOLONE
     Route: 065
  5. LEVOFLOXACIN [Concomitant]
     Active Substance: LEVOFLOXACIN
     Indication: Antibiotic therapy
     Route: 065

REACTIONS (7)
  - Lung abscess [Not Recovered/Not Resolved]
  - Hypoalbuminaemia [Unknown]
  - Tachycardia [Unknown]
  - Oedema peripheral [Unknown]
  - Steroid diabetes [Recovered/Resolved]
  - Streptococcal infection [Recovering/Resolving]
  - Staphylococcal infection [Recovering/Resolving]
